FAERS Safety Report 21418959 (Version 2)
Quarter: 2022Q4

REPORT INFORMATION
  Report Type: Spontaneous
  Country: DE (occurrence: DE)
  Receive Date: 20221006
  Receipt Date: 20221101
  Transmission Date: 20230113
  Serious: Yes (Hospitalization, Other)
  Sender: FDA-Public Use
  Company Number: DE-SANOFI-01240718

PATIENT
  Age: 81 Year
  Sex: Male

DRUGS (5)
  1. KEVZARA [Suspect]
     Active Substance: SARILUMAB
     Indication: Rheumatoid arthritis
     Dosage: 150 MG, QOW
     Route: 058
     Dates: start: 20220104
  2. VOLON [Concomitant]
     Indication: Rheumatoid arthritis
     Dosage: 2 MG, QD
     Route: 048
     Dates: start: 20211020
  3. CHOLECALCIFEROL [Concomitant]
     Active Substance: CHOLECALCIFEROL
     Indication: Prophylaxis
     Dosage: 1000 IU, QD
     Route: 048
     Dates: start: 20210730
  4. COBAMAMIDE [Concomitant]
     Active Substance: COBAMAMIDE
     Indication: Prophylaxis
     Dosage: 1000 IU, QM
     Route: 058
     Dates: start: 20220329
  5. ASPIRIN [Concomitant]
     Active Substance: ASPIRIN
     Dosage: 100 MG, QD
     Route: 048
     Dates: start: 20210730

REACTIONS (3)
  - Rectal haemorrhage [Recovering/Resolving]
  - Diverticulitis [Recovering/Resolving]
  - Diverticulum intestinal [Unknown]

NARRATIVE: CASE EVENT DATE: 20220801
